FAERS Safety Report 7103261-3 (Version None)
Quarter: 2010Q4

REPORT INFORMATION
  Report Type: 
  Country: None (occurrence: None)
  Receive Date: 20101115
  Receipt Date: 20090803
  Transmission Date: 20110411
  Serious: No
  Sender: FDA-Public Use
  Company Number: US-KINGPHARMUSA00001-K200900922

PATIENT
  Sex: Male
  Weight: 72.562 kg

DRUGS (4)
  1. LEVOXYL [Suspect]
     Indication: THYROID DISORDER
     Dosage: 50 MCG, QD
     Route: 048
     Dates: start: 20070101
  2. LEVOXYL [Suspect]
     Dosage: 25 MCG, QD
     Route: 048
     Dates: start: 20070101, end: 20070101
  3. ANDROGEL [Concomitant]
     Indication: BLOOD TESTOSTERONE DECREASED
     Dosage: UNK
     Dates: start: 20070101
  4. ANDROGEL [Concomitant]
     Dosage: 25 MCG, QD
     Dates: start: 20070101

REACTIONS (3)
  - FATIGUE [None]
  - MALAISE [None]
  - WEIGHT DECREASED [None]
